FAERS Safety Report 7330760-1 (Version None)
Quarter: 2011Q1

REPORT INFORMATION
  Report Type: 
  Country: None (occurrence: None)
  Receive Date: 20110225
  Receipt Date: 20110225
  Transmission Date: 20110831
  Serious: Yes (Life-Threatening, Hospitalization)
  Sender: FDA-Public Use
  Company Number: None

PATIENT
  Age: 54 Year
  Sex: Male
  Weight: 51.5 kg

DRUGS (1)
  1. CETUXIMAB [Suspect]
     Indication: SQUAMOUS CELL CARCINOMA
     Dosage: 552 MG OTHER IV
     Route: 042
     Dates: start: 20110114, end: 20110114

REACTIONS (6)
  - HYPERHIDROSIS [None]
  - UNRESPONSIVE TO STIMULI [None]
  - EYE MOVEMENT DISORDER [None]
  - BLOOD PRESSURE INCREASED [None]
  - BRADYCARDIA [None]
  - DYSPNOEA [None]
